FAERS Safety Report 5981710-1 (Version None)
Quarter: 2008Q4

REPORT INFORMATION
  Report Type: 
  Country: None (occurrence: None)
  Receive Date: 20081202
  Receipt Date: 20081118
  Transmission Date: 20090506
  Serious: Yes (Hospitalization)
  Sender: FDA-Public Use
  Company Number: 2008US003167

PATIENT
  Age: 48 Year
  Sex: Male
  Weight: 88.4 kg

DRUGS (1)
  1. AMEVIVE [Suspect]
     Indication: PSORIASIS
     Dosage: 7.5 MG, WEEKLY, IV NOS
     Route: 042
     Dates: start: 20030807

REACTIONS (1)
  - MYOCARDIAL INFARCTION [None]
